FAERS Safety Report 8400464-2 (Version None)
Quarter: 2012Q2

REPORT INFORMATION
  Report Type: 
  Country: None (occurrence: None)
  Receive Date: 20120531
  Receipt Date: 20120523
  Transmission Date: 20120825
  Serious: Yes (Hospitalization)
  Sender: FDA-Public Use
  Company Number: US-BRISTOL-MYERS SQUIBB COMPANY-16372427

PATIENT
  Age: 73 Year
  Sex: Male

DRUGS (1)
  1. ABATACEPT [Suspect]
     Indication: RHEUMATOID ARTHRITIS
     Dosage: INTERRUPTED:11NOV2011.
     Route: 058
     Dates: start: 20060309

REACTIONS (3)
  - NAUSEA [None]
  - DIARRHOEA [None]
  - VOMITING [None]
